FAERS Safety Report 17712364 (Version 1)
Quarter: 2020Q2

REPORT INFORMATION
  Report Type: Spontaneous
  Country: US (occurrence: US)
  Receive Date: 20200424
  Receipt Date: 20200424
  Transmission Date: 20200714
  Serious: Yes (Hospitalization)
  Sender: FDA-Public Use
  Company Number: None

PATIENT
  Age: 42 Year
  Sex: Female
  Weight: 86.18 kg

DRUGS (2)
  1. IRETI NOI N [Concomitant]
     Dates: start: 20200324
  2. TRETINOIN. [Suspect]
     Active Substance: TRETINOIN
     Indication: LEUKAEMIA
     Route: 048
     Dates: start: 20200324

REACTIONS (1)
  - Neutropenia [None]

NARRATIVE: CASE EVENT DATE: 20200414
